FAERS Safety Report 4354830-5 (Version None)
Quarter: 2004Q2

REPORT INFORMATION
  Report Type: 
  Country: None (occurrence: None)
  Receive Date: 20040507
  Receipt Date: 20030707
  Transmission Date: 20050107
  Serious: Yes (Other)
  Sender: FDA-Public Use
  Company Number: US-GLAXOSMITHKLINE-A0416048A

PATIENT
  Age: 62 Year
  Sex: Male
  Weight: 70.5 kg

DRUGS (8)
  1. VALTREX [Suspect]
     Indication: HERPES OPHTHALMIC
     Dosage: 500MG TWICE PER DAY
     Route: 048
     Dates: start: 20000101
  2. LIPITOR [Concomitant]
     Dosage: 10MG PER DAY
  3. TOPROL-XL [Concomitant]
     Dosage: 25MG PER DAY
  4. ASPIRIN [Concomitant]
     Dosage: 325MG PER DAY
  5. PERIOSTAT [Concomitant]
     Dosage: 20MG PER DAY
  6. PROGRAF [Concomitant]
     Dosage: .5MG PER DAY
  7. NIASPAN [Concomitant]
     Dosage: 1500MG PER DAY
  8. MAVIK [Concomitant]
     Dosage: 4MG PER DAY

REACTIONS (2)
  - MACROCYTOSIS [None]
  - RED BLOOD CELL COUNT INCREASED [None]
